FAERS Safety Report 7715768-6 (Version None)
Quarter: 2011Q3

REPORT INFORMATION
  Report Type: 
  Country: None (occurrence: None)
  Receive Date: 20110829
  Receipt Date: 20110816
  Transmission Date: 20111222
  Serious: Yes (Other)
  Sender: FDA-Public Use
  Company Number: US-CELGENEUS-163-21880-11041013

PATIENT
  Sex: Male
  Weight: 95.34 kg

DRUGS (16)
  1. REVLIMID [Suspect]
     Dosage: 10 MILLIGRAM
     Route: 048
     Dates: start: 20070101
  2. LORTAB [Concomitant]
     Route: 065
  3. MULTI-VITAMINS [Concomitant]
     Route: 065
  4. TESTOSTERONE [Concomitant]
     Route: 065
  5. PRILOSEC [Concomitant]
     Dosage: 20 MILLIGRAM
     Route: 065
  6. REVLIMID [Suspect]
     Dosage: 2.5 MILLIGRAM
     Route: 048
     Dates: start: 20100901
  7. FLOMAX [Concomitant]
     Dosage: .4
     Route: 065
  8. HUMALOG [Concomitant]
     Route: 065
  9. LAMISIL [Concomitant]
     Route: 065
  10. LANTUS [Concomitant]
     Dosage: 40 UNITS
     Route: 065
  11. REVLIMID [Suspect]
     Dosage: 5 MILLIGRAM
     Route: 048
     Dates: start: 20070501
  12. PROSCAR [Concomitant]
     Dosage: 5 MILLIGRAM
     Route: 065
  13. CELEBREX [Concomitant]
     Dosage: 200 MILLIGRAM
     Route: 065
  14. SOMA [Concomitant]
     Dosage: 350
     Route: 065
  15. REVLIMID [Suspect]
     Dosage: 5 MILLIGRAM
     Route: 048
     Dates: start: 20090801
  16. MARIN [Concomitant]
     Dosage: 5 MILLIGRAM
     Route: 065

REACTIONS (1)
  - MYOSITIS [None]
